FAERS Safety Report 24221316 (Version 2)
Quarter: 2024Q3

REPORT INFORMATION
  Report Type: Spontaneous
  Country: CN (occurrence: CN)
  Receive Date: 20240819
  Receipt Date: 20240827
  Transmission Date: 20241017
  Serious: Yes (Hospitalization)
  Sender: NOVO NORDISK
  Company Number: CN-NOVOPROD-1267034

PATIENT
  Sex: Female

DRUGS (3)
  1. NOVORAPID [Suspect]
     Active Substance: INSULIN ASPART
     Indication: Product used for unknown indication
     Dosage: 12 IU, TID
  2. NOVORAPID [Suspect]
     Active Substance: INSULIN ASPART
     Dosage: 16 IU, TID
     Dates: start: 20240805
  3. NOVORAPID [Suspect]
     Active Substance: INSULIN ASPART
     Dosage: 12 IU, TID
     Dates: start: 20240804

REACTIONS (5)
  - Cardiac disorder [Unknown]
  - Hyperglycaemia [Unknown]
  - Drug ineffective [Unknown]
  - Intentional product use issue [Unknown]
  - Product quality issue [Unknown]

NARRATIVE: CASE EVENT DATE: 20240805
